FAERS Safety Report 22298129 (Version 2)
Quarter: 2023Q2

REPORT INFORMATION
  Report Type: Spontaneous
  Country: IT (occurrence: IT)
  Receive Date: 20230509
  Receipt Date: 20230607
  Transmission Date: 20230722
  Serious: Yes (Death, Other)
  Sender: FDA-Public Use
  Company Number: IT-Blueprint Medicines Corporation-LT-IT-2023-000602

PATIENT

DRUGS (7)
  1. NUCYNTA [Suspect]
     Active Substance: TAPENTADOL HYDROCHLORIDE
     Indication: Pain
     Dosage: UNK UNK, UNKNOWN
     Route: 065
     Dates: start: 2020
  2. NUCYNTA [Suspect]
     Active Substance: TAPENTADOL HYDROCHLORIDE
     Dosage: 100 MILLIGRAM, BID
     Route: 065
     Dates: start: 2020
  3. AVAPRITINIB [Suspect]
     Active Substance: AVAPRITINIB
     Indication: Malignant mast cell neoplasm
     Dosage: 200 MILLIGRAM, 1/DAY
     Route: 065
     Dates: start: 202003
  4. AVAPRITINIB [Suspect]
     Active Substance: AVAPRITINIB
     Indication: Systemic mastocytosis
     Dosage: 300 MILLIGRAM, 1/DAY
     Dates: start: 202103
  5. AVAPRITINIB [Suspect]
     Active Substance: AVAPRITINIB
     Dosage: 200 MILLIGRAM, 1/DAY
     Dates: start: 202003
  6. OXYCODONE [Suspect]
     Active Substance: OXYCODONE
     Indication: Pain
     Dosage: UNK, UNKNOWN
     Route: 065
     Dates: start: 2020
  7. FENTANYL [Concomitant]
     Active Substance: FENTANYL
     Indication: Pain
     Dosage: UNK, UNKNOWN
     Route: 065
     Dates: start: 2020, end: 2020

REACTIONS (7)
  - Disease progression [Fatal]
  - Leukopenia [Unknown]
  - Nausea [Unknown]
  - Confusional state [Unknown]
  - Arthralgia [Unknown]
  - Pain in extremity [Unknown]
  - Symptom recurrence [Unknown]

NARRATIVE: CASE EVENT DATE: 20200101
